FAERS Safety Report 5065384-2 (Version None)
Quarter: 2006Q3

REPORT INFORMATION
  Report Type: 
  Country: None (occurrence: None)
  Receive Date: 20060707
  Receipt Date: 20060106
  Transmission Date: 20061208
  Serious: Yes (Hospitalization)
  Sender: FDA-Public Use
  Company Number: SUS1-2006-00058

PATIENT
  Age: 38 Year
  Sex: Male

DRUGS (1)
  1. PENTASA [Suspect]
     Indication: COLITIS ULCERATIVE
     Dosage: 2 G DAILY, ORAL
     Route: 048
     Dates: start: 20010701, end: 20051218

REACTIONS (1)
  - PANCREATITIS [None]
